FAERS Safety Report 8969819 (Version 1)
Quarter: 2012Q4

REPORT INFORMATION
  Report Type: 
  Country: AU (occurrence: AU)
  Receive Date: 20121217
  Receipt Date: 20121217
  Transmission Date: 20130627
  Serious: Yes (Death, Other)
  Sender: FDA-Public Use
  Company Number: AU-B.I. PHARMACEUTICALS,INC./RIDGEFIELD-2012-AU-01989AU

PATIENT
  Age: 73 Year
  Sex: Male

DRUGS (4)
  1. PRADAXA [Suspect]
     Indication: CEREBROVASCULAR ACCIDENT PROPHYLAXIS
     Dosage: 300 mg
     Dates: start: 20110701
  2. PRADAXA [Suspect]
     Indication: ATRIAL FIBRILLATION
  3. FRUSEMIDE [Concomitant]
     Dosage: large doses
  4. ACE INHIBITOR [Concomitant]

REACTIONS (1)
  - Cardiac failure [Fatal]
